FAERS Safety Report 9184396 (Version 1)
Quarter: 2012Q4

REPORT INFORMATION
  Report Type: 
  Country: US (occurrence: US)
  Receive Date: 20121101
  Receipt Date: 20121101
  Transmission Date: 20130627
  Serious: Yes (Other)
  Sender: FDA-Public Use
  Company Number: PHHY2012US096004

PATIENT
  Age: 89 Year
  Sex: Female

DRUGS (1)
  1. ASCRIPTIN BUFFERED REG STRENGTH TABLETS [Suspect]
     Indication: BLOOD DISORDER
     Dosage: 1 DF, daily
     Route: 048
     Dates: start: 2002, end: 20121001

REACTIONS (2)
  - Fall [Unknown]
  - Incorrect drug administration duration [Unknown]
